FAERS Safety Report 10440652 (Version 13)
Quarter: 2016Q4

REPORT INFORMATION
  Report Type: Report from Study
  Country: AU (occurrence: AU)
  Receive Date: 20140909
  Receipt Date: 20161012
  Transmission Date: 20170206
  Serious: Yes (Death, Life-Threatening, Hospitalization, Other)
  Sender: FDA-Public Use
  Company Number: PHHY2014AU109025

PATIENT
  Age: 68 Year
  Sex: Male
  Weight: 90 kg

DRUGS (4)
  1. TARGIN [Concomitant]
     Active Substance: NALOXONE HYDROCHLORIDE\OXYCODONE HYDROCHLORIDE
     Indication: PRODUCT USED FOR UNKNOWN INDICATION
     Dosage: 20/10 MG, BID
     Route: 065
  2. LANREOTIDE [Suspect]
     Active Substance: LANREOTIDE
     Indication: PRODUCT USED FOR UNKNOWN INDICATION
     Dosage: UNK
     Route: 065
  3. SANDOSTATIN LAR DEPOT [Suspect]
     Active Substance: OCTREOTIDE ACETATE
     Dosage: 60 MG, TIW (EVERY 3 WEEKS)
     Route: 030
  4. SANDOSTATIN LAR DEPOT [Suspect]
     Active Substance: OCTREOTIDE ACETATE
     Indication: NEUROENDOCRINE TUMOUR
     Dosage: 60 MG, QMO (EVERY 4 WEEKS)
     Route: 030
     Dates: start: 2012

REACTIONS (19)
  - General physical health deterioration [Unknown]
  - Blood chromogranin A increased [Unknown]
  - Diarrhoea [Unknown]
  - Abdominal pain upper [Recovered/Resolved]
  - Product use issue [Unknown]
  - Mass [Recovered/Resolved]
  - Nausea [Unknown]
  - Bursitis [Unknown]
  - Groin pain [Unknown]
  - Metastases to bone [Not Recovered/Not Resolved]
  - Chest pain [Recovered/Resolved]
  - Non-small cell lung cancer [Fatal]
  - Pulmonary mass [Recovered/Resolved]
  - Type 2 diabetes mellitus [Unknown]
  - Flushing [Unknown]
  - Concomitant disease progression [Fatal]
  - Infection [Recovered/Resolved with Sequelae]
  - Recurrent cancer [Unknown]
  - Abdominal pain [Unknown]

NARRATIVE: CASE EVENT DATE: 201409
